FAERS Safety Report 5756084-1 (Version None)
Quarter: 2008Q2

REPORT INFORMATION
  Report Type: 
  Country: None (occurrence: None)
  Receive Date: 20080602
  Receipt Date: 20080528
  Transmission Date: 20081010
  Serious: Yes (Death)
  Sender: FDA-Public Use
  Company Number: NL-BOEHRINGER INGELHEIM GMBH, GERMANY-2008-NL-00305NL

PATIENT
  Age: 82 Year
  Sex: Female

DRUGS (2)
  1. PRAMIPEXOLE DIHYDROCHLORIDE [Suspect]
     Indication: RESTLESS LEGS SYNDROME
  2. DIALYSIS FOR KIDNEYS [Concomitant]

REACTIONS (3)
  - DEATH [None]
  - MEDICATION ERROR [None]
  - OVERDOSE [None]
